FAERS Safety Report 18987503 (Version 1)
Quarter: 2021Q1

REPORT INFORMATION
  Report Type: Spontaneous
  Country: US (occurrence: US)
  Receive Date: 20210309
  Receipt Date: 20210309
  Transmission Date: 20210420
  Serious: Yes (Death, Hospitalization)
  Sender: FDA-Public Use
  Company Number: US-AZURITY PHARMACEUTICALS, INC.-2021AZY00024

PATIENT
  Age: 55 Year
  Sex: Female

DRUGS (1)
  1. AMLODIPINE [Suspect]
     Active Substance: AMLODIPINE BESYLATE
     Dosage: HALF A BOTTLE
     Route: 048

REACTIONS (4)
  - Respiratory failure [Fatal]
  - Intentional overdose [Fatal]
  - Toxicity to various agents [Fatal]
  - Circulatory collapse [Fatal]
